FAERS Safety Report 8529924 (Version 2)
Quarter: 2013Q4

REPORT INFORMATION
  Report Type: Spontaneous
  Country: US (occurrence: US)
  Receive Date: 20120425
  Receipt Date: 20131014
  Transmission Date: 20140711
  Serious: Yes (Other)
  Sender: FDA-Public Use
  Company Number: US-ROCHE-790126

PATIENT
  Age: 17 Year
  Sex: Male
  Weight: 81.72 kg

DRUGS (3)
  1. ACCUTANE [Suspect]
     Indication: ACNE CYSTIC
     Route: 065
     Dates: start: 200101, end: 200105
  2. ACCUTANE [Suspect]
     Route: 065
     Dates: start: 200112, end: 200206
  3. ACCUTANE [Suspect]
     Route: 065
     Dates: start: 200501, end: 200505

REACTIONS (6)
  - Crohn^s disease [Unknown]
  - Anal abscess [Unknown]
  - Emotional distress [Not Recovered/Not Resolved]
  - Suicidal ideation [Recovered/Resolved]
  - Depression [Unknown]
  - Fistula [Unknown]
